FAERS Safety Report 7672062-X (Version None)
Quarter: 2011Q3

REPORT INFORMATION
  Report Type: 
  Country: None (occurrence: None)
  Receive Date: 20110809
  Receipt Date: 20110730
  Transmission Date: 20111222
  Serious: Yes (Hospitalization)
  Sender: FDA-Public Use
  Company Number: PHHY2011BR69486

PATIENT
  Sex: Female

DRUGS (1)
  1. EXELON [Suspect]
     Indication: DEMENTIA ALZHEIMER'S TYPE
     Dosage: 2 DF, DAILY
     Route: 048
     Dates: end: 20110704

REACTIONS (4)
  - ABDOMINAL PAIN [None]
  - CONFUSIONAL STATE [None]
  - MALAISE [None]
  - ABDOMINAL STRANGULATED HERNIA [None]
